FAERS Safety Report 5642175-2 (Version None)
Quarter: 2008Q1

REPORT INFORMATION
  Report Type: 
  Country: None (occurrence: None)
  Receive Date: 20080131
  Receipt Date: 20070928
  Transmission Date: 20080703
  Serious: No
  Sender: FDA-Public Use
  Company Number: 163-21880-07091588

PATIENT
  Age: 48 Year
  Sex: Male
  Weight: 83.0083 kg

DRUGS (4)
  1. REVLIMID [Suspect]
     Indication: MULTIPLE MYELOMA
     Dosage: 25, 20, 10 MG, DAILY FOR 21 DAYS, ORAL
     Route: 048
     Dates: start: 20070115, end: 20070201
  2. REVLIMID [Suspect]
     Indication: MULTIPLE MYELOMA
     Dosage: 25, 20, 10 MG, DAILY FOR 21 DAYS, ORAL
     Route: 048
     Dates: start: 20070213, end: 20070301
  3. REVLIMID [Suspect]
     Indication: MULTIPLE MYELOMA
     Dosage: 25, 20, 10 MG, DAILY FOR 21 DAYS, ORAL
     Route: 048
     Dates: start: 20070315
  4. BACTRIM [Concomitant]

REACTIONS (1)
  - DEPRESSION [None]
